FAERS Safety Report 5081556-5 (Version None)
Quarter: 2006Q3

REPORT INFORMATION
  Report Type: 
  Country: None (occurrence: None)
  Receive Date: 20060811
  Receipt Date: 20060802
  Transmission Date: 20061208
  Serious: Yes (Other)
  Sender: FDA-Public Use
  Company Number: 227869

PATIENT
  Age: 75 Year
  Sex: Female

DRUGS (6)
  1. RITUXAN [Suspect]
     Indication: LYMPHOMA
     Dates: end: 20060320
  2. VINCRISTIINE (VINCRISTINE SULFATE) [Suspect]
     Indication: LYMPHOMA
     Dates: end: 20060320
  3. CYCLOPHOSPHAMIDE [Suspect]
     Indication: LYMPHOMA
     Dates: end: 20060320
  4. DOXORUBICIN HCL [Suspect]
     Indication: LYMPHOMA
     Dates: end: 20060320
  5. LEUKINE [Concomitant]
  6. PREDNISONE [Suspect]
     Indication: LYMPHOMA
     Dates: end: 20060320

REACTIONS (3)
  - BONE MARROW TOXICITY [None]
  - MYELODYSPLASTIC SYNDROME [None]
  - PANCYTOPENIA [None]
